FAERS Safety Report 25141169 (Version 2)
Quarter: 2025Q2

REPORT INFORMATION
  Report Type: Spontaneous
  Country: CN (occurrence: CN)
  Receive Date: 20250331
  Receipt Date: 20250516
  Transmission Date: 20250717
  Serious: Yes (Other)
  Sender: INNOVIVA
  Company Number: CN-ISTX-2025-ISTX-000027

PATIENT
  Age: 61 Year
  Sex: Female

DRUGS (1)
  1. ZEVTERA [Suspect]
     Active Substance: CEFTOBIPROLE MEDOCARIL SODIUM
     Indication: Pneumonia
     Dosage: 500 MG, TID
     Route: 041
     Dates: start: 20250312, end: 20250312

REACTIONS (1)
  - Epilepsy [Recovering/Resolving]

NARRATIVE: CASE EVENT DATE: 20250312
